FAERS Safety Report 18781407 (Version 1)
Quarter: 2021Q1

REPORT INFORMATION
  Report Type: Spontaneous
  Country: US (occurrence: US)
  Receive Date: 20210123
  Receipt Date: 20210123
  Transmission Date: 20210419
  Serious: No
  Sender: FDA-Public Use
  Company Number: None

PATIENT
  Age: 33 Year
  Sex: Female
  Weight: 88.45 kg

DRUGS (3)
  1. RENLAFAXINE [Concomitant]
  2. BUPRENORPHINE AND NALOXONE, SUBLINGUAL FILM [Suspect]
     Active Substance: BUPRENORPHINE\NALOXONE
     Indication: DRUG DEPENDENCE
     Dosage: ?          QUANTITY:3 FILMS PER DAY;OTHER FREQUENCY:1 FILM EVERY 8 HOU;?
     Route: 060
     Dates: start: 20201103, end: 20201127
  3. APRI [Concomitant]
     Active Substance: DESOGESTREL\ETHINYL ESTRADIOL

REACTIONS (7)
  - Chills [None]
  - Abdominal pain [None]
  - Myalgia [None]
  - Restlessness [None]
  - Hyperhidrosis [None]
  - Diarrhoea [None]
  - Insomnia [None]

NARRATIVE: CASE EVENT DATE: 20201103
